FAERS Safety Report 8066348-7 (Version None)
Quarter: 2012Q1

REPORT INFORMATION
  Report Type: 
  Country: None (occurrence: None)
  Receive Date: 20120124
  Receipt Date: 20120116
  Transmission Date: 20120608
  Serious: Yes (Hospitalization)
  Sender: FDA-Public Use
  Company Number: US-US-EMD SERONO, INC.-7011265

PATIENT
  Sex: Female
  Weight: 71 kg

DRUGS (8)
  1. REBIF [Suspect]
     Indication: MULTIPLE SCLEROSIS
     Route: 058
     Dates: start: 20100113
  2. PLAVIX [Concomitant]
     Indication: COAGULOPATHY
  3. NUTRIFAST [Concomitant]
     Indication: BLOOD POTASSIUM DECREASED
  4. ANTIVERT [Concomitant]
     Indication: DIZZINESS
     Route: 048
  5. VALIUM [Concomitant]
     Indication: MUSCLE SPASMS
     Route: 048
  6. VICODIN ES [Concomitant]
     Indication: PAIN
     Route: 048
  7. SIMVASTATIN [Concomitant]
  8. POTASSIUM CHLORIDE [Concomitant]
     Indication: BLOOD POTASSIUM DECREASED

REACTIONS (3)
  - SYNCOPE [None]
  - CLOSTRIDIAL INFECTION [None]
  - BRAIN SCAN ABNORMAL [None]
